FAERS Safety Report 8185711-7 (Version None)
Quarter: 2012Q1

REPORT INFORMATION
  Report Type: 
  Country: None (occurrence: None)
  Receive Date: 20120305
  Receipt Date: 20120224
  Transmission Date: 20120608
  Serious: Yes (Other)
  Sender: FDA-Public Use
  Company Number: NG-B.I. PHARMACEUTICALS,INC./RIDGEFIELD-2012-EU-01146GD

PATIENT
  Age: 37 Year
  Sex: Female

DRUGS (3)
  1. EMTRICITABINE [Suspect]
     Indication: HIV INFECTION
  2. NEVIRAPINE [Suspect]
     Indication: HIV INFECTION
  3. TENOFOVIR [Suspect]
     Indication: HIV INFECTION

REACTIONS (6)
  - DISSEMINATED TUBERCULOSIS [None]
  - COUGH [None]
  - LYMPHADENOPATHY [None]
  - DYSPNOEA [None]
  - PYREXIA [None]
  - IMMUNE RECONSTITUTION SYNDROME [None]
